FAERS Safety Report 23618973 (Version 1)
Quarter: 2024Q1

REPORT INFORMATION
  Report Type: Spontaneous
  Country: US (occurrence: US)
  Receive Date: 20240311
  Receipt Date: 20240311
  Transmission Date: 20240409
  Serious: Yes (Other)
  Sender: FDA-Public Use
  Company Number: US-ELI_LILLY_AND_COMPANY-US202402017660

PATIENT
  Age: 61 Year
  Sex: Female

DRUGS (1)
  1. RETEVMO [Suspect]
     Active Substance: SELPERCATINIB
     Indication: Lung adenocarcinoma
     Dosage: 120 MG, BID
     Route: 048

REACTIONS (11)
  - Pulmonary oedema [Unknown]
  - Hepatic enzyme increased [Unknown]
  - Dysphonia [Unknown]
  - Ageusia [Unknown]
  - Weight increased [Unknown]
  - Throat clearing [Unknown]
  - Laryngeal mass [Unknown]
  - Cough [Unknown]
  - Blood potassium increased [Unknown]
  - Hypertension [Unknown]
  - Dry mouth [Unknown]
